FAERS Safety Report 6016268-4 (Version None)
Quarter: 2008Q4

REPORT INFORMATION
  Report Type: 
  Country: None (occurrence: None)
  Receive Date: 20081218
  Receipt Date: 20081203
  Transmission Date: 20090506
  Serious: Yes (Other)
  Sender: FDA-Public Use
  Company Number: ALA_00220_2008

PATIENT
  Sex: Female

DRUGS (1)
  1. ROWASA [Suspect]
     Indication: CROHN'S DISEASE
     Dosage: DF ORAL
     Route: 048
     Dates: end: 20080701

REACTIONS (2)
  - ABORTION INDUCED [None]
  - DRUG EXPOSURE DURING PREGNANCY [None]
